FAERS Safety Report 6826670-6 (Version None)
Quarter: 2010Q3

REPORT INFORMATION
  Report Type: 
  Country: None (occurrence: None)
  Receive Date: 20100709
  Receipt Date: 20100629
  Transmission Date: 20110219
  Serious: Yes (Other)
  Sender: FDA-Public Use
  Company Number: JP-PFIZER INC-2010079504

PATIENT
  Age: 76 Year
  Sex: Female

DRUGS (1)
  1. SEIBULE [Suspect]
     Dosage: UNK
     Route: 048
     Dates: start: 20100402, end: 20100409

REACTIONS (1)
  - HYPOGLYCAEMIA [None]
